FAERS Safety Report 6466082-0 (Version None)
Quarter: 2009Q4

REPORT INFORMATION
  Report Type: 
  Country: None (occurrence: None)
  Receive Date: 20091201
  Receipt Date: 20091201
  Transmission Date: 20100525
  Serious: No
  Sender: FDA-Public Use
  Company Number: None

PATIENT
  Age: 35 Year
  Sex: Female
  Weight: 72.5755 kg

DRUGS (1)
  1. TOPAMAX [Suspect]
     Indication: CONVULSION
     Dosage: 2 AM - IN - 2 PM 3X DAY ORALLY
     Route: 048
     Dates: start: 19990101, end: 20090101

REACTIONS (2)
  - TUNNEL VISION [None]
  - VISUAL FIELD DEFECT [None]
